FAERS Safety Report 23517750 (Version 1)
Quarter: 2024Q1

REPORT INFORMATION
  Report Type: Spontaneous
  Country: US (occurrence: US)
  Receive Date: 20240213
  Receipt Date: 20240213
  Transmission Date: 20240410
  Serious: No
  Sender: FDA-Public Use
  Company Number: US-PFIZER INC-PV202400019149

PATIENT
  Age: 43 Year
  Sex: Female

DRUGS (9)
  1. NURTEC ODT [Suspect]
     Active Substance: RIMEGEPANT SULFATE
     Indication: Migraine
     Dosage: UNK
  2. FIORICET [Suspect]
     Active Substance: ACETAMINOPHEN\BUTALBITAL\CAFFEINE
     Indication: Migraine
     Dosage: UNK
  3. TREXIMET [Suspect]
     Active Substance: NAPROXEN SODIUM\SUMATRIPTAN SUCCINATE
     Indication: Migraine
     Dosage: UNK
  4. ACETAMINOPHEN\ASPIRIN\CAFFEINE\CODEINE PHOSPHATE [Suspect]
     Active Substance: ACETAMINOPHEN\ASPIRIN\CAFFEINE\CODEINE PHOSPHATE
     Indication: Migraine
     Dosage: UNK
  5. UBROGEPANT [Suspect]
     Active Substance: UBROGEPANT
     Indication: Migraine
     Dosage: UNK
  6. ALEVE [Suspect]
     Active Substance: NAPROXEN SODIUM
     Indication: Migraine
     Dosage: UNK
  7. TYLENOL [Suspect]
     Active Substance: ACETAMINOPHEN
     Indication: Migraine
     Dosage: UNK
  8. ADVIL [Suspect]
     Active Substance: IBUPROFEN
     Indication: Migraine
     Dosage: UNK
  9. EXCEDRIN MIGRAINE [Suspect]
     Active Substance: ACETAMINOPHEN\ASPIRIN\CAFFEINE
     Indication: Migraine
     Dosage: UNK

REACTIONS (1)
  - Drug ineffective [Unknown]
